FAERS Safety Report 8200574-9 (Version None)
Quarter: 2012Q1

REPORT INFORMATION
  Report Type: 
  Country: None (occurrence: None)
  Receive Date: 20120306
  Receipt Date: 20120216
  Transmission Date: 20120608
  Serious: Yes (Hospitalization)
  Sender: FDA-Public Use
  Company Number: 20120097

PATIENT
  Age: 7 Year
  Sex: Male

DRUGS (2)
  1. VENOFER [Suspect]
     Indication: IRON DEFICIENCY
     Dosage: INTRAVENOUS SLOW TEST DOSE
  2. VENOFER [Suspect]
     Indication: IRON DEFICIENCY
     Dosage: INTRAVNEOUS DRIP OVER 2 HOURS
     Route: 041

REACTIONS (7)
  - RIGHT VENTRICLE OUTFLOW TRACT OBSTRUCTION [None]
  - INTRACARDIAC THROMBUS [None]
  - VENTRICULAR HYPERTROPHY [None]
  - QRS AXIS ABNORMAL [None]
  - METABOLIC ACIDOSIS [None]
  - CYANOSIS [None]
  - GENERAL PHYSICAL HEALTH DETERIORATION [None]
